FAERS Safety Report 23180979 (Version 1)
Quarter: 2023Q4

REPORT INFORMATION
  Report Type: Report from Study
  Country: US (occurrence: US)
  Receive Date: 20231114
  Receipt Date: 20231114
  Transmission Date: 20240109
  Serious: Yes (Hospitalization)
  Sender: FDA-Public Use
  Company Number: US-TEVA-2023-US-2946217

PATIENT
  Age: 12 Year
  Sex: Female
  Weight: 39.4 kg

DRUGS (6)
  1. METHOTREXATE [Suspect]
     Active Substance: METHOTREXATE
     Indication: Acute lymphocytic leukaemia
     Dosage: 25 MILLIGRAM, WEEKLY EXCEPT ON WEEK OF LP; ORAL USE
     Route: 048
     Dates: start: 20230912
  2. VINCRISTINE [Suspect]
     Active Substance: VINCRISTINE
     Indication: Acute lymphocytic leukaemia
     Dosage: 1.5 MILLIGRAM/SQ. METER(1.8MG) ONCE ON DAYS 1, 29, 57; INTRAVENOUS USE
     Route: 042
     Dates: start: 20230905
  3. METHOTREXATE [Suspect]
     Active Substance: METHOTREXATE
     Indication: Acute lymphocytic leukaemia
     Dosage: 15 MILLIGRAM, DAYS 1 AND 29 OF CYCLES 1 AND 2; INTRATHECAL USE
     Route: 037
     Dates: start: 20230905
  4. PREDNISONE [Suspect]
     Active Substance: PREDNISONE
     Indication: Acute lymphocytic leukaemia
     Dosage: 50 MILLIGRAM DAILY; 25 MILLIGRAM, BID ON DAYS 1-5, 29-33, AND 59-61; ORAL USE
     Route: 048
     Dates: start: 20230905
  5. MERCAPTOPURINE [Suspect]
     Active Substance: MERCAPTOPURINE
     Indication: Acute lymphocytic leukaemia
     Dosage: 75 MILLIGRAM/SQ. METER, QD,- 100MG FOR 5 DAYS/WEEK, AND 75MG FOR 2 DAYS/WEEK; ORAL USE
     Route: 048
     Dates: start: 20230905
  6. RUXOLITINIB [Suspect]
     Active Substance: RUXOLITINIB
     Indication: Acute lymphocytic leukaemia
     Dosage: 120 MILLIGRAM DAILY; 60 MILLIGRAM, BID (TWICE DAILY) FOR 14 DAYS (DAYS 1-14, 29-42, 57-70); ORAL USE
     Route: 048
     Dates: start: 20230905

REACTIONS (1)
  - Blood bilirubin increased [Unknown]

NARRATIVE: CASE EVENT DATE: 20231013
